FAERS Safety Report 25300037 (Version 1)
Quarter: 2025Q2

REPORT INFORMATION
  Report Type: Spontaneous
  Country: FR (occurrence: FR)
  Receive Date: 20250512
  Receipt Date: 20250512
  Transmission Date: 20250716
  Serious: Yes (Other)
  Sender: MYLAN
  Company Number: None

PATIENT
  Age: 25 Year
  Sex: Male

DRUGS (2)
  1. TRAMADOL [Suspect]
     Active Substance: TRAMADOL
     Indication: Product used for unknown indication
  2. CANNABIS SATIVA SUBSP. INDICA TOP [Suspect]
     Active Substance: CANNABIS SATIVA SUBSP. INDICA TOP
     Indication: Product used for unknown indication
     Dosage: QD (5 JOINTS PER DAY)
     Dates: end: 20250322

REACTIONS (9)
  - Substance use disorder [Recovering/Resolving]
  - Drug use disorder [Recovered/Resolved]
  - Abdominal pain [Unknown]
  - Intentional product misuse [Recovered/Resolved]
  - Withdrawal syndrome [Not Recovered/Not Resolved]
  - Vomiting [Unknown]
  - Nausea [Unknown]
  - Tremor [Unknown]
  - Insomnia [Unknown]

NARRATIVE: CASE EVENT DATE: 20250322
